FAERS Safety Report 8321526-4 (Version None)
Quarter: 2012Q2

REPORT INFORMATION
  Report Type: 
  Country: None (occurrence: None)
  Receive Date: 20120430
  Receipt Date: 20120418
  Transmission Date: 20120825
  Serious: No
  Sender: FDA-Public Use
  Company Number: US-BAYER-2012-039197

PATIENT
  Sex: Male
  Weight: 82 kg

DRUGS (1)
  1. NAPROXEN SODIUM [Suspect]
     Indication: BACK PAIN
     Dosage: 1 UNIT
     Route: 048

REACTIONS (1)
  - THERAPEUTIC RESPONSE DECREASED [None]
